FAERS Safety Report 10080959 (Version 1)
Quarter: 2014Q2

REPORT INFORMATION
  Report Type: Spontaneous
  Country: US (occurrence: None)
  Receive Date: 20140414
  Receipt Date: 20140414
  Transmission Date: 20141212
  Serious: Yes (Other)
  Sender: FDA-Public Use
  Company Number: SYM-2014-19569

PATIENT
  Age: 6 Year
  Sex: Female
  Weight: 22.68 kg

DRUGS (5)
  1. DIASTAT [Suspect]
     Indication: EPILEPSY
     Dosage: AS REQUIRED, RECTAL
     Route: 054
     Dates: start: 20140323, end: 20140323
  2. PHENOBARBITAL (PHENOBARBITAL) (PHENOBARBITAL) [Concomitant]
  3. KEPPRA (LEVETIRACETAM) [Concomitant]
  4. ALBUTEROL (SALBUTAMOL) (SALBUTAMOL) [Concomitant]
  5. NASONEX (MOMETASONE FUROATE) (MOMETASONE FUROATE) [Concomitant]

REACTIONS (2)
  - Convulsion [None]
  - Hypersensitivity [None]
